FAERS Safety Report 15548857 (Version 1)
Quarter: 2018Q4

REPORT INFORMATION
  Report Type: Spontaneous
  Country: GB (occurrence: GB)
  Receive Date: 20181025
  Receipt Date: 20181025
  Transmission Date: 20190205
  Serious: Yes (Hospitalization)
  Sender: FDA-Public Use
  Company Number: GB-TEVA-2018-GB-968629

PATIENT
  Age: 80 Year
  Sex: Female

DRUGS (12)
  1. SITAGLIPTIN [Concomitant]
     Active Substance: SITAGLIPTIN
  2. DESMOPRESSIN [Concomitant]
     Active Substance: DESMOPRESSIN
  3. CEFALEXIN [Concomitant]
     Active Substance: CEPHALEXIN
  4. LISINOPRIL. [Concomitant]
     Active Substance: LISINOPRIL
  5. TOLTERODINE [Concomitant]
     Active Substance: TOLTERODINE
  6. OMEPRAZOLE SODIUM [Suspect]
     Active Substance: OMEPRAZOLE SODIUM
     Dosage: 20 MILLIGRAM DAILY;
     Route: 048
     Dates: end: 20180926
  7. FLUOXETINE HYDROCHLORIDE. [Concomitant]
     Active Substance: FLUOXETINE HYDROCHLORIDE
  8. FERROUS FUMARATE [Concomitant]
     Active Substance: FERROUS FUMARATE
  9. ADCAL-D3 [Concomitant]
     Active Substance: CALCIUM CARBONATE\CHOLECALCIFEROL
  10. ATORVASTATIN [Concomitant]
     Active Substance: ATORVASTATIN
  11. AMLODIPINE MALEATE [Concomitant]
     Active Substance: AMLODIPINE MALEATE
  12. METFORMIN HYDROCHLORIDE. [Concomitant]
     Active Substance: METFORMIN HYDROCHLORIDE

REACTIONS (1)
  - Blood sodium decreased [Not Recovered/Not Resolved]
